FAERS Safety Report 10328176 (Version 1)
Quarter: 2014Q3

REPORT INFORMATION
  Report Type: Spontaneous
  Country: US (occurrence: None)
  Receive Date: 20140716
  Receipt Date: 20140716
  Transmission Date: 20150326
  Serious: No
  Sender: FDA-Public Use
  Company Number: None

PATIENT
  Age: 26 Year
  Sex: Male
  Weight: 78.2 kg

DRUGS (1)
  1. INTRON A [Suspect]
     Active Substance: INTERFERON ALFA-2B
     Dosage: 168 MU ?4 DOSES HELD ON 11/16/12, 11/19/12, 11/21/12, 11/23/12 AMD TJEM DPSE REDICED TO 6.6 MU/M2
     Dates: start: 20121212

REACTIONS (2)
  - Blood testosterone decreased [None]
  - Erectile dysfunction [None]

NARRATIVE: CASE EVENT DATE: 20121113
